FAERS Safety Report 8382193-7 (Version None)
Quarter: 2012Q2

REPORT INFORMATION
  Report Type: 
  Country: None (occurrence: None)
  Receive Date: 20120524
  Receipt Date: 20120521
  Transmission Date: 20120825
  Serious: No
  Sender: FDA-Public Use
  Company Number: US-PFIZER INC-2012117289

PATIENT
  Sex: Male
  Weight: 113 kg

DRUGS (2)
  1. VIAGRA [Suspect]
     Indication: ERECTILE DYSFUNCTION
     Dosage: 25 MG, UNK
  2. VIAGRA [Suspect]
     Dosage: 50 MG,DAILY
     Route: 048
     Dates: start: 20120508, end: 20120521

REACTIONS (2)
  - DRUG INEFFECTIVE [None]
  - DRUG DISPENSING ERROR [None]
